FAERS Safety Report 5037568-0 (Version None)
Quarter: 2006Q2

REPORT INFORMATION
  Report Type: 
  Country: None (occurrence: None)
  Receive Date: 20060628
  Receipt Date: 20060411
  Transmission Date: 20061013
  Serious: Yes (Hospitalization, Other)
  Sender: FDA-Public Use
  Company Number: AT-GLAXOSMITHKLINE-B0420676A

PATIENT
  Age: 68 Year
  Sex: Male
  Weight: 86 kg

DRUGS (13)
  1. AVANDIA [Suspect]
     Dosage: 4MG PER DAY
     Route: 048
     Dates: end: 20060124
  2. DOXAZOSIN [Suspect]
     Indication: HYPERTONIA
     Dosage: 8MG SEE DOSAGE TEXT
  3. THYREX [Suspect]
     Dosage: .1MG SEE DOSAGE TEXT
  4. CITALOPRAM [Suspect]
     Dosage: 20MG PER DAY
  5. DILATREND [Suspect]
     Dosage: 1TAB PER DAY
  6. AMARYL [Suspect]
     Dosage: 3MG PER DAY
  7. THROMBO ASS [Suspect]
     Dosage: 100MG PER DAY
     Dates: end: 20050601
  8. GLUCOPHAGE [Suspect]
     Dosage: 850MG TWICE PER DAY
  9. PRAVACHOL [Suspect]
     Dosage: 20MG PER DAY
  10. GICHTEX PLUS [Suspect]
     Dosage: .5U PER DAY
  11. ACEMIN [Suspect]
     Dosage: 30MG PER DAY
  12. LOPERAMID [Suspect]
     Dosage: 2MG PER DAY
  13. UNKNOWN DRUG [Concomitant]
     Indication: DRUG USE FOR UNKNOWN INDICATION
     Route: 065

REACTIONS (11)
  - ANAEMIA [None]
  - ASTHENIA [None]
  - CARDIOVASCULAR DISORDER [None]
  - DRUG INTERACTION [None]
  - FALL [None]
  - MUSCULAR WEAKNESS [None]
  - NEUROPATHY [None]
  - OEDEMA [None]
  - PARAESTHESIA [None]
  - TENSION [None]
  - VERTIGO [None]
